FAERS Safety Report 8217543-5 (Version None)
Quarter: 2012Q1

REPORT INFORMATION
  Report Type: 
  Country: None (occurrence: None)
  Receive Date: 20120305
  Receipt Date: 20111024
  Transmission Date: 20120608
  Serious: No
  Sender: FDA-Public Use
  Company Number: 1000024895

PATIENT
  Age: 67 Year
  Sex: Female

DRUGS (10)
  1. LISINOPRIL [Concomitant]
  2. ZOCOR [Concomitant]
  3. MIRALAX (POLYETHYLENE GLYCOL) (POLYETHYLENE GLYCOL) [Concomitant]
  4. SPIRIVA (TIOTROPIUM BROMIDE( (TIOTROPIUM BROMIDE) [Concomitant]
  5. VENTOLIN (ALBUTEROL) (ALBUTEROL) [Concomitant]
  6. DALIRESP [Suspect]
     Indication: CHRONIC OBSTRUCTIVE PULMONARY DISEASE
     Dosage: 500 MCG (500 MCG, 1 IN 1 D), ORAL
     Route: 048
     Dates: start: 20111004, end: 20111011
  7. ASPIRIN [Concomitant]
  8. ALBUTEROL (ALBUTEROL) (ALBUTEROL) [Concomitant]
  9. METOPROLOL ER (METOPROLOL) (METOPROLOL) [Concomitant]
  10. ZOLOFT [Concomitant]

REACTIONS (1)
  - CHEST PAIN [None]
